FAERS Safety Report 16743585 (Version 1)
Quarter: 2019Q3

REPORT INFORMATION
  Report Type: Spontaneous
  Country: US (occurrence: US)
  Receive Date: 20190827
  Receipt Date: 20190827
  Transmission Date: 20191005
  Serious: No
  Sender: FDA-Public Use
  Company Number: US-ACCORD-130634

PATIENT
  Age: 89 Year
  Sex: Male

DRUGS (1)
  1. BICALUTAMIDE ACCORD [Suspect]
     Active Substance: BICALUTAMIDE
     Indication: PROSTATE CANCER
     Dosage: ONCE DAILY
     Route: 048
     Dates: start: 201810

REACTIONS (2)
  - Prostatic specific antigen increased [Not Recovered/Not Resolved]
  - Wrong technique in product usage process [Unknown]
